FAERS Safety Report 8004063-6 (Version None)
Quarter: 2011Q4

REPORT INFORMATION
  Report Type: 
  Country: None (occurrence: None)
  Receive Date: 20111222
  Receipt Date: 20111213
  Transmission Date: 20120403
  Serious: Yes (Hospitalization, Other)
  Sender: FDA-Public Use
  Company Number: FR-ASTRAZENECA-2011SE70114

PATIENT
  Age: 69 Year
  Sex: Male

DRUGS (7)
  1. IRBESARTAN [Suspect]
     Route: 065
     Dates: start: 20110214, end: 20110612
  2. BISOPROLOL FUMARATE [Concomitant]
  3. PREVISCAN [Concomitant]
  4. ATACAND [Suspect]
     Indication: CARDIAC FAILURE
     Route: 048
     Dates: start: 20090101, end: 20110214
  5. ATACAND [Suspect]
     Route: 048
     Dates: start: 20110612
  6. LASIX [Concomitant]
  7. TARDIFERON [Concomitant]

REACTIONS (8)
  - MUSCULOSKELETAL STIFFNESS [None]
  - GAIT DISTURBANCE [None]
  - EYE PRURITUS [None]
  - SPEECH DISORDER [None]
  - FATIGUE [None]
  - PULMONARY OEDEMA [None]
  - RENAL FAILURE ACUTE [None]
  - FALL [None]
